FAERS Safety Report 10076631 (Version 1)
Quarter: 2014Q2

REPORT INFORMATION
  Report Type: Spontaneous
  Country: US (occurrence: None)
  Receive Date: 20140411
  Receipt Date: 20140411
  Transmission Date: 20141212
  Serious: Yes (Disabling, Other)
  Sender: FDA-Public Use
  Company Number: None

PATIENT
  Age: 45 Year
  Sex: Female
  Weight: 90.72 kg

DRUGS (1)
  1. CORTICOSTEROID [Suspect]

REACTIONS (8)
  - Product odour abnormal [None]
  - Hypersomnia [None]
  - Spinal pain [None]
  - Condition aggravated [None]
  - General physical health deterioration [None]
  - Paraesthesia [None]
  - Feeling abnormal [None]
  - Documented hypersensitivity to administered drug [None]
